FAERS Safety Report 5622067-5 (Version None)
Quarter: 2008Q1

REPORT INFORMATION
  Report Type: 
  Country: None (occurrence: None)
  Receive Date: 20080206
  Receipt Date: 20080122
  Transmission Date: 20080703
  Serious: Yes (Disabling)
  Sender: FDA-Public Use
  Company Number: 08H-167-0313787-00

PATIENT
  Age: 70 Year
  Sex: Male

DRUGS (3)
  1. PROPOFOL [Suspect]
     Indication: ANAESTHESIA
     Dosage: 225 MCG, INTRAVENOUS DRIP
     Route: 041
     Dates: start: 20000522
  2. SUBLIMAZE (FENTANYL) [Suspect]
     Indication: ANAESTHESIA
     Dosage: 100 MCG, INTRAVENOUS
     Route: 042
     Dates: start: 20000525, end: 20000525
  3. ATENOLOL [Concomitant]

REACTIONS (1)
  - ANOSMIA [None]
